FAERS Safety Report 10204046 (Version 1)
Quarter: 2014Q2

REPORT INFORMATION
  Report Type: Spontaneous
  Country: US (occurrence: US)
  Receive Date: 20140529
  Receipt Date: 20140529
  Transmission Date: 20141212
  Serious: No
  Sender: FDA-Public Use
  Company Number: US-009507513-1405USA011155

PATIENT
  Age: 17 Year
  Sex: Female
  Weight: 89.8 kg

DRUGS (1)
  1. NEXPLANON [Suspect]
     Indication: CONTRACEPTION
     Dosage: 3 YEAR IMPLANT IN THE RIGHT ARM
     Route: 059
     Dates: start: 20131111

REACTIONS (9)
  - Metrorrhagia [Unknown]
  - Haemorrhage [Unknown]
  - Abdominal pain upper [Recovered/Resolved]
  - Nausea [Unknown]
  - Dizziness [Unknown]
  - Diarrhoea [Recovered/Resolved]
  - Poor quality sleep [Unknown]
  - Hypoaesthesia [Unknown]
  - Pain in extremity [Unknown]
